FAERS Safety Report 19955604 (Version 7)
Quarter: 2022Q2

REPORT INFORMATION
  Report Type: Report from Study
  Country: NL (occurrence: NL)
  Receive Date: 20211013
  Receipt Date: 20220605
  Transmission Date: 20220721
  Serious: Yes (Hospitalization)
  Sender: FDA-Public Use
  Company Number: NL-ABBVIE-21K-114-3996037-00

PATIENT
  Age: 67 Year
  Sex: Female

DRUGS (6)
  1. CARBIDOPA\LEVODOPA [Suspect]
     Active Substance: CARBIDOPA\LEVODOPA
     Indication: Parkinson^s disease
     Route: 050
     Dates: start: 20170112
  2. CARBIDOPA\LEVODOPA [Suspect]
     Active Substance: CARBIDOPA\LEVODOPA
     Dosage: MD: 12 ML, CD: 2.3 ML/H, ED: 2 ML
     Route: 050
  3. BEPANTHEN [Concomitant]
     Indication: Product used for unknown indication
     Dosage: FOR INSERTION SITE
  4. SINEMET [Concomitant]
     Active Substance: CARBIDOPA\LEVODOPA
     Indication: Product used for unknown indication
     Dosage: CR, TWO TIMES
  5. TEMAZEPAM [Concomitant]
     Active Substance: TEMAZEPAM
     Indication: Product used for unknown indication
  6. MIDAZOLAM [Concomitant]
     Active Substance: MIDAZOLAM
     Indication: Seizure

REACTIONS (16)
  - Epilepsy [Recovered/Resolved]
  - Epilepsy [Unknown]
  - Urinary tract infection [Not Recovered/Not Resolved]
  - Pneumonia [Recovering/Resolving]
  - Hyperthyroidism [Not Recovered/Not Resolved]
  - Weight fluctuation [Recovered/Resolved]
  - Mental disorder [Recovering/Resolving]
  - Memory impairment [Recovering/Resolving]
  - Aphasia [Not Recovered/Not Resolved]
  - Device physical property issue [Unknown]
  - Device difficult to use [Unknown]
  - Hypophagia [Not Recovered/Not Resolved]
  - Device issue [Unknown]
  - Device physical property issue [Unknown]
  - Malaise [Not Recovered/Not Resolved]
  - On and off phenomenon [Recovered/Resolved]

NARRATIVE: CASE EVENT DATE: 20210501
